FAERS Safety Report 8446908-1 (Version None)
Quarter: 2012Q2

REPORT INFORMATION
  Report Type: 
  Country: None (occurrence: None)
  Receive Date: 20120323
  Receipt Date: 20110908
  Transmission Date: 20120825
  Serious: Yes (Hospitalization)
  Sender: FDA-Public Use
  Company Number: 163-21880-11091079

PATIENT
  Age: 66 Year
  Sex: Female
  Weight: 73 kg

DRUGS (9)
  1. COLCHICINE [Concomitant]
  2. ZOFRAN [Concomitant]
  3. DILTIAZEM [Concomitant]
  4. MULTIVITAMIN [Concomitant]
  5. BENACAR/HCTZ (CIBADREX) [Concomitant]
  6. POTASSIUM CHLORIDE [Concomitant]
  7. PREVACID [Concomitant]
  8. REVLIMID [Suspect]
     Indication: MULTIPLE MYELOMA
     Dosage: 15 MG, QD X 21 DAYS, PO
     Route: 048
     Dates: start: 20110201
  9. CLONIDINE [Concomitant]

REACTIONS (2)
  - DEHYDRATION [None]
  - PYREXIA [None]
